FAERS Safety Report 18328590 (Version 1)
Quarter: 2020Q3

REPORT INFORMATION
  Report Type: Spontaneous
  Country: TR (occurrence: TR)
  Receive Date: 20200930
  Receipt Date: 20200930
  Transmission Date: 20201103
  Serious: Yes (Other)
  Sender: FDA-Public Use
  Company Number: TR-BRISTOL-MYERS SQUIBB COMPANY-BMS-2020-076989

PATIENT
  Age: 18 Year
  Sex: Male

DRUGS (1)
  1. KENACORT [Suspect]
     Active Substance: TRIAMCINOLONE
     Dosage: 4 MG/ML, MONTHLY, 4 SESSIONS
     Route: 026

REACTIONS (2)
  - Foreign body reaction [Recovering/Resolving]
  - Intentional product use issue [Unknown]
